FAERS Safety Report 6045510-9 (Version None)
Quarter: 2009Q1

REPORT INFORMATION
  Report Type: 
  Country: None (occurrence: None)
  Receive Date: 20090121
  Receipt Date: 20090116
  Transmission Date: 20090719
  Serious: Yes (Other)
  Sender: FDA-Public Use
  Company Number: A0764024A

PATIENT
  Age: 63 Year
  Sex: Female
  Weight: 66 kg

DRUGS (5)
  1. SEREVENT [Suspect]
     Indication: DRUG USE FOR UNKNOWN INDICATION
     Route: 065
  2. FLOVENT [Concomitant]
     Route: 065
  3. ALTACE [Concomitant]
     Route: 065
  4. EZETROL [Concomitant]
     Route: 065
  5. GLUCOSAMINE [Concomitant]
     Route: 065

REACTIONS (3)
  - CONVULSION [None]
  - NERVOUSNESS [None]
  - TREMOR [None]
